FAERS Safety Report 8783189 (Version 4)
Quarter: 2013Q2

REPORT INFORMATION
  Report Type: Report from Study
  Country: IT (occurrence: IT)
  Receive Date: 20120913
  Receipt Date: 20130628
  Transmission Date: 20140414
  Serious: Yes (Hospitalization, Other)
  Sender: FDA-Public Use
  Company Number: IT-JNJFOC-20110911524

PATIENT
  Age: 31 Year
  Sex: Female
  Weight: 57 kg

DRUGS (7)
  1. GOLIMUMAB [Suspect]
     Indication: RHEUMATOID ARTHRITIS
     Dates: start: 20100917
  2. GOLIMUMAB [Suspect]
     Indication: RHEUMATOID ARTHRITIS
     Dates: start: 20110720, end: 20111114
  3. MEDROL [Concomitant]
     Indication: RHEUMATOID ARTHRITIS
     Route: 048
     Dates: start: 20100601
  4. HEPARIN [Concomitant]
     Indication: THROMBOPHLEBITIS
     Route: 058
     Dates: start: 20101228
  5. ANTRA [Concomitant]
     Route: 048
     Dates: start: 20101116
  6. METHOTREXATE [Concomitant]
     Indication: RHEUMATOID ARTHRITIS
     Dates: start: 201009
  7. PLAQUENIL [Concomitant]
     Indication: RHEUMATOID ARTHRITIS
     Route: 048
     Dates: start: 20110927

REACTIONS (2)
  - Pneumonia [Recovered/Resolved]
  - Arthritis [Unknown]
